FAERS Safety Report 10512429 (Version 3)
Quarter: 2015Q3

REPORT INFORMATION
  Report Type: Spontaneous
  Country: JP (occurrence: JP)
  Receive Date: 20141010
  Receipt Date: 20150826
  Transmission Date: 20151125
  Serious: Yes (Hospitalization)
  Sender: FDA-Public Use
  Company Number: PHHY2014JP131436

PATIENT
  Sex: Female

DRUGS (7)
  1. LEUCOVORIN. [Concomitant]
     Active Substance: LEUCOVORIN
     Indication: CHEMOTHERAPY
     Route: 065
  2. FOLFOX-6 [Concomitant]
     Active Substance: FLUOROURACIL\LEUCOVORIN CALCIUM\OXALIPLATIN
     Indication: CHEMOTHERAPY
     Route: 065
     Dates: start: 200911
  3. 5 FLUORO URACIL [Concomitant]
     Active Substance: FLUOROURACIL
     Indication: CHEMOTHERAPY
     Route: 065
  4. OXALIPLATIN. [Concomitant]
     Active Substance: OXALIPLATIN
     Indication: CHEMOTHERAPY
     Route: 065
  5. ZOMETA [Suspect]
     Active Substance: ZOLEDRONIC ACID
     Indication: METASTASES TO BONE
     Dosage: 4 MG, UNK
     Route: 041
  6. FOLFIRI BEVACIZUMAB [Concomitant]
     Indication: ADENOCARCINOMA OF COLON
     Route: 065
     Dates: start: 201008
  7. BEVACIZUMAB [Concomitant]
     Active Substance: BEVACIZUMAB
     Indication: CHEMOTHERAPY
     Dosage: 5 MG/KG, UNK
     Route: 065
     Dates: start: 200911

REACTIONS (7)
  - Renal glycosuria [Unknown]
  - Aminoaciduria [Unknown]
  - Fanconi syndrome acquired [Recovering/Resolving]
  - Electrolyte imbalance [Recovering/Resolving]
  - Proteinuria [Unknown]
  - Hypouricaemia [Unknown]
  - Renal tubular acidosis [Unknown]
